FAERS Safety Report 9669126 (Version 1)
Quarter: 2013Q4

REPORT INFORMATION
  Report Type: Spontaneous
  Country: US (occurrence: US)
  Receive Date: 20131105
  Receipt Date: 20131105
  Transmission Date: 20140711
  Serious: Yes (Hospitalization)
  Sender: FDA-Public Use
  Company Number: US-ASTRAZENECA-2013SE79594

PATIENT
  Age: 32628 Day
  Sex: Female
  Weight: 74.8 kg

DRUGS (21)
  1. SYMBICORT [Suspect]
     Indication: ASTHMA
     Dosage: 160/4.5, 2 PUFFS BID
     Route: 055
     Dates: start: 2009
  2. SYMBICORT [Suspect]
     Indication: ASTHMA
     Dosage: 80/4.5, 2 PUFFS BID
     Route: 055
     Dates: start: 2011
  3. SYMBICORT [Suspect]
     Indication: ASTHMA
     Dosage: 1 PUFFS BID
     Route: 055
  4. OMEPRAZOLE [Suspect]
     Indication: GASTROOESOPHAGEAL REFLUX DISEASE
     Route: 048
  5. HYDROCHLOROTHIAZIDE [Suspect]
     Indication: BLOOD PRESSURE ABNORMAL
  6. METOPROLOL TARTRATE [Concomitant]
     Indication: BLOOD PRESSURE ABNORMAL
  7. METOPROLOL TARTRATE [Concomitant]
     Indication: HEART RATE ABNORMAL
  8. NIFEDIPINE XL [Concomitant]
     Indication: BLOOD PRESSURE ABNORMAL
  9. ATORVASTATIN [Concomitant]
     Indication: BLOOD CHOLESTEROL ABNORMAL
  10. OXYGEN [Concomitant]
  11. ASPIRIN [Concomitant]
     Indication: ANTICOAGULANT THERAPY
  12. ASPIRIN [Concomitant]
     Indication: CARDIAC DISORDER
  13. SERTRALINE [Concomitant]
     Indication: ANXIETY
  14. DONEPEZIL [Concomitant]
     Indication: MEMORY IMPAIRMENT
     Dates: start: 2012
  15. CALCIUM CITRATE WITH VIT D [Concomitant]
     Indication: VITAMIN SUPPLEMENTATION
  16. FISH OIL [Concomitant]
     Indication: VITAMIN SUPPLEMENTATION
  17. MAGNESIUM OXIDE [Concomitant]
     Indication: SUPPLEMENTATION THERAPY
  18. VITAMIN D3 [Concomitant]
     Indication: SUPPLEMENTATION THERAPY
  19. VITAMIN D [Concomitant]
     Indication: SUPPLEMENTATION THERAPY
  20. ARTHRITIS STRENGTH TYLENOL [Concomitant]
     Indication: ARTHRITIS
  21. PROLIA [Concomitant]
     Indication: BONE DENSITY ABNORMAL
     Dosage: INJECTION Q 6 MONTHS

REACTIONS (7)
  - Ventricular tachycardia [Unknown]
  - Dyspnoea [Unknown]
  - Blood magnesium decreased [Unknown]
  - Pollakiuria [Unknown]
  - Blood potassium decreased [Unknown]
  - Device misuse [Unknown]
  - Intentional drug misuse [Unknown]
